FAERS Safety Report 13268394 (Version 2)
Quarter: 2017Q2

REPORT INFORMATION
  Report Type: Spontaneous
  Country: US (occurrence: US)
  Receive Date: 20170224
  Receipt Date: 20170405
  Transmission Date: 20170830
  Serious: Yes (Hospitalization)
  Sender: FDA-Public Use
  Company Number: US-INCYTE CORPORATION-2017IN001182

PATIENT
  Sex: Male

DRUGS (1)
  1. JAKAFI [Suspect]
     Active Substance: RUXOLITINIB
     Indication: MYELOFIBROSIS
     Dosage: 5 MG TABLETS (ONE TABLET IN THE AM AND ONE TABLET IN THE PM) BID
     Route: 048
     Dates: start: 20150828, end: 20170216

REACTIONS (1)
  - Acute myeloid leukaemia [Unknown]
